FAERS Safety Report 17851281 (Version 1)
Quarter: 2020Q2

REPORT INFORMATION
  Report Type: Spontaneous
  Country: CN (occurrence: CN)
  Receive Date: 20200602
  Receipt Date: 20200602
  Transmission Date: 20200714
  Serious: Yes (Life-Threatening, Hospitalization)
  Sender: FDA-Public Use
  Company Number: CN-ELI_LILLY_AND_COMPANY-CN202005010805

PATIENT
  Age: 77 Year
  Sex: Male
  Weight: 54 kg

DRUGS (5)
  1. OXALIPLATIN. [Suspect]
     Active Substance: OXALIPLATIN
     Indication: PANCREATIC CARCINOMA
     Dosage: 150 MG, SINGLE
     Route: 041
     Dates: start: 20200511
  2. SODIUM CHLORIDE. [Concomitant]
     Active Substance: SODIUM CHLORIDE
     Indication: PANCREATIC CARCINOMA
     Dosage: 100 ML, UNKNOWN
     Route: 041
     Dates: start: 20200511, end: 20200518
  3. GEMZAR [Suspect]
     Active Substance: GEMCITABINE HYDROCHLORIDE
     Indication: PANCREATIC CARCINOMA
     Dosage: 1.4 G, SINGLE
     Route: 041
     Dates: start: 20200511
  4. GLUCOSE [Concomitant]
     Active Substance: DEXTROSE
     Indication: PANCREATIC CARCINOMA
     Dosage: 500 ML, SINGLE
     Route: 041
     Dates: start: 20200511, end: 20200511
  5. GEMZAR [Suspect]
     Active Substance: GEMCITABINE HYDROCHLORIDE
     Dosage: 1.6 UNK
     Route: 041
     Dates: start: 20200518

REACTIONS (5)
  - Vomiting [Recovering/Resolving]
  - Bone marrow failure [Recovering/Resolving]
  - Abdominal pain [Recovering/Resolving]
  - Nausea [Recovering/Resolving]
  - Diarrhoea [Recovering/Resolving]

NARRATIVE: CASE EVENT DATE: 20200520
